FAERS Safety Report 21070986 (Version 1)
Quarter: 2022Q3

REPORT INFORMATION
  Report Type: Spontaneous
  Country: US (occurrence: None)
  Receive Date: 20220712
  Receipt Date: 20220712
  Transmission Date: 20221027
  Serious: Yes (Other)
  Sender: FDA-Public Use
  Company Number: None

PATIENT
  Sex: Male

DRUGS (1)
  1. FOCALIN [Suspect]
     Active Substance: DEXMETHYLPHENIDATE HYDROCHLORIDE
     Indication: Product used for unknown indication

REACTIONS (6)
  - Anxiety [None]
  - Insomnia [None]
  - Psychomotor hyperactivity [None]
  - Disturbance in attention [None]
  - Defiant behaviour [None]
  - Disturbance in attention [None]
